FAERS Safety Report 23078706 (Version 2)
Quarter: 2023Q4

REPORT INFORMATION
  Report Type: Spontaneous
  Country: JP (occurrence: JP)
  Receive Date: 20231018
  Receipt Date: 20231117
  Transmission Date: 20240109
  Serious: Yes (Death, Other)
  Sender: FDA-Public Use
  Company Number: JP-SA-2023SA141814

PATIENT
  Age: 22 Month
  Sex: Male

DRUGS (3)
  1. SABRIL [Suspect]
     Active Substance: VIGABATRIN
     Indication: Infantile spasms
     Dosage: 225 MG, BID
     Route: 048
     Dates: start: 20220114, end: 20230221
  2. SABRIL [Suspect]
     Active Substance: VIGABATRIN
     Dosage: 100 MG, BID
     Route: 048
     Dates: start: 20230222, end: 20230328
  3. SABRIL [Suspect]
     Active Substance: VIGABATRIN
     Dosage: 50 MG, BID
     Route: 048
     Dates: start: 20230329, end: 20230426

REACTIONS (2)
  - Encephalopathy [Fatal]
  - Retinogram abnormal [Unknown]

NARRATIVE: CASE EVENT DATE: 20230131
